FAERS Safety Report 16663190 (Version 1)
Quarter: 2019Q3

REPORT INFORMATION
  Report Type: Report from Study
  Country: US (occurrence: US)
  Receive Date: 20190802
  Receipt Date: 20190802
  Transmission Date: 20191004
  Serious: No
  Sender: FDA-Public Use
  Company Number: US-EXELIXIS-CABO-19020932

PATIENT
  Sex: Male

DRUGS (1)
  1. CABOMETYX [Suspect]
     Active Substance: CABOZANTINIB S-MALATE
     Indication: ILL-DEFINED DISORDER
     Dosage: 20 MG, QD
     Route: 048
     Dates: start: 20181019

REACTIONS (1)
  - Adverse drug reaction [Unknown]
